FAERS Safety Report 8695999 (Version 2)
Quarter: 2012Q4

REPORT INFORMATION
  Report Type: 
  Country: US (occurrence: US)
  Receive Date: 20120801
  Receipt Date: 20120829
  Transmission Date: 20130627
  Serious: No
  Sender: FDA-Public Use
  Company Number: US-BIOGENIDEC-2012BI027338

PATIENT
  Age: 65 Year
  Sex: Female
  Weight: 74 kg

DRUGS (3)
  1. TYSABRI [Suspect]
     Indication: MULTIPLE SCLEROSIS
     Route: 042
     Dates: start: 20110817, end: 20120221
  2. CLONIDINE [Concomitant]
     Indication: DRUG WITHDRAWAL SYNDROME
  3. OXYCODONE [Concomitant]
     Indication: MULTIPLE SCLEROSIS

REACTIONS (5)
  - Drug detoxification [Unknown]
  - Ligament rupture [Not Recovered/Not Resolved]
  - Fall [Recovered/Resolved]
  - Neutralising antibodies [Unknown]
  - Hypersensitivity [Recovered/Resolved]
